FAERS Safety Report 8387129-0 (Version None)
Quarter: 2012Q2

REPORT INFORMATION
  Report Type: 
  Country: None (occurrence: None)
  Receive Date: 20120525
  Receipt Date: 20120518
  Transmission Date: 20120825
  Serious: Yes (Hospitalization, Other)
  Sender: FDA-Public Use
  Company Number: US-ASTRAZENECA-2011SE31251

PATIENT
  Age: 71 Year
  Sex: Female

DRUGS (3)
  1. CRESTOR [Suspect]
     Route: 048
  2. ASPIRIN [Concomitant]
  3. PLAVIX [Concomitant]

REACTIONS (8)
  - LUMBAR VERTEBRAL FRACTURE [None]
  - BACK PAIN [None]
  - SPINAL FRACTURE [None]
  - CORONARY ARTERY DISEASE [None]
  - INTENTIONAL DRUG MISUSE [None]
  - HYPERLIPIDAEMIA [None]
  - FALL [None]
  - MYOCARDIAL INFARCTION [None]
